FAERS Safety Report 16858880 (Version 1)
Quarter: 2019Q3

REPORT INFORMATION
  Report Type: Spontaneous
  Country: FR (occurrence: FR)
  Receive Date: 20190926
  Receipt Date: 20190926
  Transmission Date: 20191005
  Serious: Yes (Other)
  Sender: FDA-Public Use
  Company Number: FR-ALLERGAN-1938619US

PATIENT
  Sex: Female

DRUGS (1)
  1. TRIPTORELIN PAMOATE - BP [Suspect]
     Active Substance: TRIPTORELIN PAMOATE
     Indication: HYSTERECTOMY
     Dosage: 3RD INJECTION AFTER THE 15-JUN-2019 AND THE 15/07/2019) (1 DOSAGE FORMS,1 IN 1 M)
     Route: 030
     Dates: start: 20190812, end: 20190812

REACTIONS (2)
  - Cerebral haematoma [Recovering/Resolving]
  - Off label use [Unknown]

NARRATIVE: CASE EVENT DATE: 20190825
